FAERS Safety Report 9928534 (Version 1)
Quarter: 2014Q1

REPORT INFORMATION
  Report Type: Spontaneous
  Country: US (occurrence: None)
  Receive Date: 20140225
  Receipt Date: 20140225
  Transmission Date: 20141002
  Serious: Yes (Hospitalization)
  Sender: FDA-Public Use
  Company Number: 2014AP001447

PATIENT
  Age: 4 Year
  Sex: Male

DRUGS (2)
  1. CYCLOSPORINE [Suspect]
     Indication: IMMUNOSUPPRESSANT DRUG THERAPY
     Dosage: ;QD;IVDRP
     Route: 041
  2. CYCLOSPORINE ORAL SOLUTION [Concomitant]

REACTIONS (4)
  - Anaphylactic reaction [None]
  - Drug hypersensitivity [None]
  - Oxygen saturation decreased [None]
  - Blood pressure systolic decreased [None]
